FAERS Safety Report 7056113-1 (Version None)
Quarter: 2010Q4

REPORT INFORMATION
  Report Type: 
  Country: None (occurrence: None)
  Receive Date: 20101021
  Receipt Date: 20101010
  Transmission Date: 20110411
  Serious: Yes (Hospitalization)
  Sender: FDA-Public Use
  Company Number: PHHY2010US68852

PATIENT
  Sex: Female
  Weight: 183 kg

DRUGS (1)
  1. VALTURNA [Suspect]
     Dosage: 300/320 MG DAILY ONCE
     Dates: start: 20100630, end: 20100828

REACTIONS (3)
  - BLOOD CREATININE INCREASED [None]
  - BLOOD UREA INCREASED [None]
  - URAEMIC ENCEPHALOPATHY [None]
